FAERS Safety Report 8426436-X (Version None)
Quarter: 2012Q2

REPORT INFORMATION
  Report Type: 
  Country: None (occurrence: None)
  Receive Date: 20120611
  Receipt Date: 20120606
  Transmission Date: 20120825
  Serious: Yes (Death, Hospitalization, Other)
  Sender: FDA-Public Use
  Company Number: US-PFIZER INC-2012135912

PATIENT
  Age: 72 Year
  Sex: Female

DRUGS (2)
  1. REVATIO [Suspect]
     Dosage: UNK
  2. REMODULIN [Suspect]
     Indication: PULMONARY ARTERIAL HYPERTENSION
     Dosage: 73.44 UG/KG, UNK (0.051 MICROGRAM/KG, 1 IN 1 MIN)
     Route: 042
     Dates: start: 20080126

REACTIONS (2)
  - DYSPNOEA [None]
  - PULMONARY ARTERIAL HYPERTENSION [None]
